FAERS Safety Report 16462213 (Version 3)
Quarter: 2019Q3

REPORT INFORMATION
  Report Type: Report from Study
  Country: US (occurrence: US)
  Receive Date: 20190621
  Receipt Date: 20190827
  Transmission Date: 20191004
  Serious: No
  Sender: FDA-Public Use
  Company Number: US-KYOWAKIRIN-2019BKK009596

PATIENT

DRUGS (1)
  1. POTELIGEO [Suspect]
     Active Substance: MOGAMULIZUMAB-KPKC
     Indication: PRODUCT USED FOR UNKNOWN INDICATION
     Dosage: UNKNOWN
     Route: 065

REACTIONS (13)
  - Haemoglobin decreased [Unknown]
  - Arthropathy [Unknown]
  - Arthralgia [Unknown]
  - White blood cell count decreased [Unknown]
  - Pruritus [Recovered/Resolved]
  - Decreased appetite [Recovered/Resolved]
  - Rash [Recovered/Resolved]
  - Infusion site reaction [Unknown]
  - Peripheral swelling [Unknown]
  - Fatigue [Not Recovered/Not Resolved]
  - Rash macular [Unknown]
  - Drug eruption [Not Recovered/Not Resolved]
  - Musculoskeletal discomfort [Not Recovered/Not Resolved]
